FAERS Safety Report 21480078 (Version 3)
Quarter: 2022Q4

REPORT INFORMATION
  Report Type: Spontaneous
  Country: DE (occurrence: DE)
  Receive Date: 20221019
  Receipt Date: 20221205
  Transmission Date: 20230113
  Serious: Yes (Other)
  Sender: FDA-Public Use
  Company Number: DE-ROCHE-3163352

PATIENT
  Age: 54 Year
  Sex: Male

DRUGS (16)
  1. BENDAMUSTINE HYDROCHLORIDE [Suspect]
     Active Substance: BENDAMUSTINE HYDROCHLORIDE
     Indication: Diffuse large B-cell lymphoma
     Dosage: IN THIRD LINE, WITH POLIVY AND RITUXIMAB
     Route: 065
     Dates: start: 20220201, end: 20220501
  2. CYTARABINE [Suspect]
     Active Substance: CYTARABINE
     Indication: Diffuse large B-cell lymphoma
     Dosage: SECOND LINE
     Route: 065
  3. DEXAMETHASONE [Suspect]
     Active Substance: DEXAMETHASONE
     Indication: Diffuse large B-cell lymphoma
     Dosage: SECOND LINE WITH RITUXIMAB THREE TIMES
     Route: 065
     Dates: start: 20210801, end: 20211201
  4. ETOPOSIDE [Suspect]
     Active Substance: ETOPOSIDE
     Indication: Diffuse large B-cell lymphoma
     Dosage: SECOND LINE
     Route: 065
  5. VINCRISTINE SULFATE [Suspect]
     Active Substance: VINCRISTINE SULFATE
     Indication: Diffuse large B-cell lymphoma
     Dosage: UNK
     Route: 065
     Dates: start: 20181115, end: 20190401
  6. RITUXIMAB [Suspect]
     Active Substance: RITUXIMAB
     Indication: Diffuse large B-cell lymphoma
     Dosage: FIRST LINE WITH CHOP
     Route: 065
     Dates: start: 20181115, end: 20190401
  7. RITUXIMAB [Suspect]
     Active Substance: RITUXIMAB
     Dosage: SECOND LINE WITH GDP THREE TIMES FOLLOWED BY BEAM
     Route: 065
     Dates: start: 20210801, end: 20211201
  8. RITUXIMAB [Suspect]
     Active Substance: RITUXIMAB
     Dosage: IN THIRD LINE, WITH POLIVY AND BENDAMUSTINE
     Route: 065
     Dates: start: 20220201, end: 20220501
  9. GEMCITABINE [Suspect]
     Active Substance: GEMCITABINE
     Indication: Diffuse large B-cell lymphoma
     Dosage: SECOND LINE WITH RITUXIMAB THREE TIMES
     Route: 065
     Dates: start: 20210801, end: 20211201
  10. CARMUSTINE [Suspect]
     Active Substance: CARMUSTINE
     Indication: Diffuse large B-cell lymphoma
     Dosage: SECOND LINE
     Route: 065
  11. PREDNISONE [Suspect]
     Active Substance: PREDNISONE
     Indication: Diffuse large B-cell lymphoma
     Dosage: UNK
     Route: 065
     Dates: start: 20181115, end: 20190401
  12. MELPHALAN [Suspect]
     Active Substance: MELPHALAN
     Indication: Diffuse large B-cell lymphoma
     Dosage: SECOND LINE
     Route: 065
  13. POLIVY [Suspect]
     Active Substance: POLATUZUMAB VEDOTIN-PIIQ
     Indication: Diffuse large B-cell lymphoma
     Dosage: IN THIRD LINE, WITH BENDAMUSTINE AND RITUXIMAB
     Route: 065
     Dates: start: 20220201, end: 20220501
  14. CISPLATIN [Suspect]
     Active Substance: CISPLATIN
     Indication: Diffuse large B-cell lymphoma
     Dosage: SECOND LINE WITH RITUXIMAB THREE TIMESE TIMES
     Route: 065
     Dates: start: 20210801, end: 20211201
  15. CYCLOPHOSPHAMIDE [Suspect]
     Active Substance: CYCLOPHOSPHAMIDE
     Indication: Diffuse large B-cell lymphoma
     Dosage: UNK
     Route: 065
     Dates: start: 20181115, end: 20190401
  16. DOXORUBICIN HYDROCHLORIDE [Suspect]
     Active Substance: DOXORUBICIN HYDROCHLORIDE
     Indication: Diffuse large B-cell lymphoma
     Dosage: UNK
     Route: 065
     Dates: start: 20181115, end: 20190401

REACTIONS (5)
  - Disease progression [Not Recovered/Not Resolved]
  - Glomerular filtration rate decreased [Recovered/Resolved]
  - Ureteric compression [Recovered/Resolved]
  - Blood bilirubin increased [Unknown]
  - Off label use [Unknown]

NARRATIVE: CASE EVENT DATE: 20220101
